FAERS Safety Report 13997082 (Version 6)
Quarter: 2019Q2

REPORT INFORMATION
  Report Type: Report from Study
  Country: US (occurrence: US)
  Receive Date: 20170921
  Receipt Date: 20190509
  Transmission Date: 20190711
  Serious: Yes (Hospitalization)
  Sender: FDA-Public Use
  Company Number: US-PFIZER INC-2017403746

PATIENT
  Age: 18 Year
  Sex: Female
  Weight: 84.1 kg

DRUGS (12)
  1. GEODON [Suspect]
     Active Substance: ZIPRASIDONE HYDROCHLORIDE\ZIPRASIDONE MESYLATE
     Indication: NEGATIVISM
     Dosage: 20 MG, QHS
     Route: 048
     Dates: start: 20170912, end: 20170915
  2. LEXAPRO [Suspect]
     Active Substance: ESCITALOPRAM OXALATE
     Dosage: 20 MG, DAILY
     Route: 048
     Dates: start: 20170905, end: 20170912
  3. PF-06886992 [Suspect]
     Active Substance: INVESTIGATIONAL PRODUCT
     Indication: IMMUNISATION
     Dosage: 0.5 ML, SINGLE
     Route: 030
     Dates: start: 20170727, end: 20170727
  4. LEXAPRO [Suspect]
     Active Substance: ESCITALOPRAM OXALATE
     Indication: NEGATIVISM
     Dosage: 10 MG, DAILY
     Route: 048
     Dates: start: 20170829, end: 20170905
  5. LEXAPRO [Suspect]
     Active Substance: ESCITALOPRAM OXALATE
     Dosage: 10 MG, 2X/DAY
     Route: 048
     Dates: start: 20170912, end: 20170915
  6. CELEXA [Concomitant]
     Active Substance: CITALOPRAM HYDROBROMIDE
     Indication: NEGATIVISM
     Dosage: 20 MG, DAILY
     Route: 048
     Dates: start: 20170822, end: 20170912
  7. AMBIEN [Concomitant]
     Active Substance: ZOLPIDEM TARTRATE
     Indication: INSOMNIA
     Dosage: 10 MG, 1X/DAY
     Route: 048
     Dates: start: 20170508
  8. PF-06886992 [Suspect]
     Active Substance: INVESTIGATIONAL PRODUCT
     Dosage: 0.5 ML, SINGLE
     Dates: start: 20170915, end: 20170915
  9. CELEXA [Concomitant]
     Active Substance: CITALOPRAM HYDROBROMIDE
     Dosage: 20 MG, 2X/DAY
     Route: 048
     Dates: start: 20170913, end: 20170915
  10. TRILEPTAL [Concomitant]
     Active Substance: OXCARBAZEPINE
     Indication: NEGATIVISM
     Dosage: 150 MG, 2X/DAY
     Route: 048
     Dates: start: 20160929
  11. BUSPIRONE [Concomitant]
     Active Substance: BUSPIRONE HYDROCHLORIDE
     Indication: NEGATIVISM
     Dosage: 10 MG, 2X/DAY
     Route: 048
     Dates: start: 20160929, end: 20170915
  12. GIANVI [Concomitant]
     Active Substance: DROSPIRENONE\ETHINYL ESTRADIOL
     Indication: MENSTRUATION IRREGULAR
     Dosage: 1 TAB, DAILY
     Route: 048
     Dates: start: 20170822

REACTIONS (2)
  - Overdose [Recovered/Resolved]
  - Suicide attempt [Recovered/Resolved]

NARRATIVE: CASE EVENT DATE: 20170915
